FAERS Safety Report 4512204-8 (Version None)
Quarter: 2004Q4

REPORT INFORMATION
  Report Type: 
  Country: None (occurrence: None)
  Receive Date: 20041123
  Receipt Date: 20041110
  Transmission Date: 20050328
  Serious: Yes (Other)
  Sender: FDA-Public Use
  Company Number: 2004093741

PATIENT
  Sex: Female

DRUGS (7)
  1. CELEBREX [Suspect]
     Indication: ILL-DEFINED DISORDER
  2. OLANZAPINE [Concomitant]
  3. QUETIAPINE FUMARATE (QUETIAPINE FUMARATE) [Concomitant]
  4. VALPROATE SODIUM [Concomitant]
  5. CHLORPROMAZINE [Concomitant]
  6. TEMAZEPAM [Concomitant]
  7. SERTRALINE HCL [Concomitant]

REACTIONS (3)
  - DEMENTIA [None]
  - HYPERKALAEMIA [None]
  - PSYCHOTIC DISORDER [None]
